FAERS Safety Report 8582406-2 (Version None)
Quarter: 2012Q3

REPORT INFORMATION
  Report Type: 
  Country: None (occurrence: None)
  Receive Date: 20120809
  Receipt Date: 20120801
  Transmission Date: 20120928
  Serious: Yes (Hospitalization)
  Sender: FDA-Public Use
  Company Number: BE-GLAXOSMITHKLINE-B0775647B

PATIENT
  Sex: Female
  Weight: 54 kg

DRUGS (6)
  1. CLOPIDOGREL [Concomitant]
     Dosage: 75MG PER DAY
     Route: 048
     Dates: start: 20120126
  2. TRASTUZUMAB [Suspect]
     Indication: BREAST CANCER
     Dosage: 110MGK CYCLIC
     Route: 042
     Dates: start: 20111222
  3. VENTOLIN [Concomitant]
     Indication: CHRONIC OBSTRUCTIVE PULMONARY DISEASE
     Dosage: 1U AS REQUIRED
     Route: 055
  4. LAPATINIB [Suspect]
     Indication: BREAST CANCER
     Dosage: 1000MG PER DAY
     Route: 048
     Dates: start: 20111222
  5. DOCETAXEL [Suspect]
     Indication: BREAST CANCER
     Dosage: 115MGM2 CYCLIC
     Route: 042
     Dates: start: 20111222
  6. ASPIRIN [Concomitant]
     Dosage: 80MG PER DAY
     Route: 048
     Dates: start: 20120126

REACTIONS (1)
  - PNEUMOCOCCAL INFECTION [None]
